FAERS Safety Report 7602816-7 (Version None)
Quarter: 2011Q3

REPORT INFORMATION
  Report Type: 
  Country: None (occurrence: None)
  Receive Date: 20110711
  Receipt Date: 20110711
  Transmission Date: 20111222
  Serious: Yes (Other)
  Sender: FDA-Public Use
  Company Number: None

PATIENT
  Sex: Male
  Weight: 78 kg

DRUGS (1)
  1. PROSCAR [Suspect]
     Indication: ALOPECIA
     Dosage: 1MG DAILY PO
     Route: 048
     Dates: start: 20080408, end: 20080610

REACTIONS (7)
  - LOSS OF LIBIDO [None]
  - MENTAL IMPAIRMENT [None]
  - INSOMNIA [None]
  - ERECTILE DYSFUNCTION [None]
  - GENITAL HYPOAESTHESIA [None]
  - ANORGASMIA [None]
  - WRONG TECHNIQUE IN DRUG USAGE PROCESS [None]
